FAERS Safety Report 18929652 (Version 1)
Quarter: 2021Q1

REPORT INFORMATION
  Report Type: Report from Study
  Country: ES (occurrence: ES)
  Receive Date: 20210223
  Receipt Date: 20210223
  Transmission Date: 20210420
  Serious: Yes (Other)
  Sender: FDA-Public Use
  Company Number: ES-MYLANLABS-2021M1009348

PATIENT
  Age: 49 Year
  Sex: Male

DRUGS (7)
  1. PIPERACILINA + TAZOBACTAM [Concomitant]
     Active Substance: PIPERACILLIN SODIUM\TAZOBACTAM SODIUM
     Dosage: UNK
  2. METILPREDNISOLONA                  /00049601/ [Concomitant]
     Active Substance: METHYLPREDNISOLONE
     Dosage: 400 MILLIGRAM, QD
     Route: 048
     Dates: start: 20200330, end: 20200402
  3. MEROPENEM. [Concomitant]
     Active Substance: MEROPENEM
     Dosage: UNK
  4. AZITHROMYCIN ANHYDROUS. [Suspect]
     Active Substance: AZITHROMYCIN ANHYDROUS
     Indication: PRODUCT USED FOR UNKNOWN INDICATION
     Dosage: UNK
     Dates: start: 20200324
  5. HIDROXICLOROQUINA                  /00072601/ [Concomitant]
     Active Substance: HYDROXYCHLOROQUINE
     Indication: COVID-19
     Dosage: 400 MG / 12 HOURS THE FIRST DAY AND THE REST 200 MG / 12 HOURS
     Route: 048
     Dates: start: 20200324, end: 20200330
  6. CEFTRIAXONA                        /00672201/ [Concomitant]
     Active Substance: CEFTRIAXONE
     Dosage: UNK
  7. LOPINAVIR/RITONAVIR [Suspect]
     Active Substance: LOPINAVIR\RITONAVIR
     Indication: COVID-19
     Dosage: 400/100 MG EVERY 12 HOURS
     Route: 048
     Dates: start: 20200324, end: 20200326

REACTIONS (3)
  - Diarrhoea [Recovered/Resolved]
  - Off label use [Unknown]
  - Cholestasis [Recovered/Resolved]

NARRATIVE: CASE EVENT DATE: 20200324
